FAERS Safety Report 6552302-0 (Version None)
Quarter: 2010Q1

REPORT INFORMATION
  Report Type: 
  Country: None (occurrence: None)
  Receive Date: 20100126
  Receipt Date: 20100115
  Transmission Date: 20100710
  Serious: Yes (Death, Hospitalization)
  Sender: FDA-Public Use
  Company Number: JP-AMGEN-US387700

PATIENT
  Age: 73 Year
  Sex: Male

DRUGS (8)
  1. ENBREL [Suspect]
     Indication: RHEUMATOID ARTHRITIS
     Route: 058
     Dates: start: 20091204, end: 20091225
  2. RHEUMATREX [Suspect]
     Indication: RHEUMATOID ARTHRITIS
     Dosage: 8 MG WEEKLY
     Route: 048
     Dates: start: 20090501, end: 20091227
  3. PREDONINE [Concomitant]
     Dosage: 10 MG DAILY
     Route: 048
     Dates: start: 20090501
  4. ISCOTIN [Concomitant]
     Dosage: 300 MG DAILY
     Route: 048
     Dates: start: 20091115, end: 20091227
  5. AMLODIPINE [Concomitant]
     Dosage: UNKNOWN
     Route: 048
  6. DIOVAN [Concomitant]
     Dosage: UNKNOWN
     Route: 048
  7. ACTOS [Concomitant]
     Dosage: UNKNOWN
     Route: 048
  8. CARDENALIN [Concomitant]
     Dosage: UNKNOWN
     Route: 048

REACTIONS (5)
  - DISSEMINATED INTRAVASCULAR COAGULATION [None]
  - JAUNDICE [None]
  - MULTI-ORGAN FAILURE [None]
  - PNEUMOCYSTIS JIROVECI PNEUMONIA [None]
  - RENAL FAILURE ACUTE [None]
